FAERS Safety Report 9746812 (Version 2)
Quarter: 2014Q1

REPORT INFORMATION
  Report Type: Spontaneous
  Country: US (occurrence: US)
  Receive Date: 20131211
  Receipt Date: 20140116
  Transmission Date: 20141002
  Serious: No
  Sender: FDA-Public Use
  Company Number: US-TEVA-450145USA

PATIENT
  Age: 30 Year
  Sex: Female
  Weight: 70.37 kg

DRUGS (2)
  1. PARAGARD 380A [Suspect]
     Indication: CONTRACEPTION
     Route: 015
     Dates: start: 20131122, end: 20131203
  2. AMITRIPTYLINE [Concomitant]

REACTIONS (3)
  - Vaginal haemorrhage [Recovering/Resolving]
  - Abdominal pain lower [Recovering/Resolving]
  - Device expulsion [Recovered/Resolved]
